FAERS Safety Report 4343249-9 (Version None)
Quarter: 2004Q1

REPORT INFORMATION
  Report Type: 
  Country: None (occurrence: None)
  Receive Date: 20040325
  Receipt Date: 20040218
  Transmission Date: 20041129
  Serious: No
  Sender: FDA-Public Use
  Company Number: USA040259778

PATIENT
  Age: 72 Year
  Sex: Female
  Weight: 77 kg

DRUGS (8)
  1. FORTEO [Suspect]
     Indication: OSTEOPOROSIS
     Dates: start: 20040107
  2. PLAQUENIL [Concomitant]
  3. NEXIUM (ESOMEPRZOLE) [Concomitant]
  4. SYNTHROID [Concomitant]
  5. DEMADEX [Concomitant]
  6. ADVIL (IBUPROFEN) [Concomitant]
  7. VICODIN [Concomitant]
  8. CALTRATE 600 PLUS VITAMIN D [Concomitant]

REACTIONS (6)
  - ARTHRALGIA [None]
  - BONE PAIN [None]
  - CHEST PAIN [None]
  - NECK PAIN [None]
  - PAIN [None]
  - PAIN IN EXTREMITY [None]
